FAERS Safety Report 22056328 (Version 1)
Quarter: 2023Q1

REPORT INFORMATION
  Report Type: Report from Study
  Country: US (occurrence: US)
  Receive Date: 20230302
  Receipt Date: 20230302
  Transmission Date: 20230418
  Serious: Yes (Death)
  Sender: FDA-Public Use
  Company Number: US-ABBVIE-4325134

PATIENT
  Sex: Male

DRUGS (1)
  1. VENCLEXTA [Suspect]
     Active Substance: VENETOCLAX
     Indication: Myelodysplastic syndrome
     Dosage: FORM STRENGTH: 100 MG?DOSE TAKE 4 TABLETS (400MG) BY MOUTH DAILY WITH FOOD AND WATER FOR 14 DAYS ...
     Route: 048

REACTIONS (1)
  - Death [Fatal]
